FAERS Safety Report 9800009 (Version 2)
Quarter: 2015Q3

REPORT INFORMATION
  Report Type: Spontaneous
  Country: US (occurrence: US)
  Receive Date: 20140106
  Receipt Date: 20150806
  Transmission Date: 20151125
  Serious: No
  Sender: FDA-Public Use
  Company Number: US-GILEAD-2010-0030969

PATIENT
  Age: 67 Year
  Sex: Female
  Weight: 88.45 kg

DRUGS (18)
  1. DIOVAN [Concomitant]
     Active Substance: VALSARTAN
  2. DILTIAZEM [Concomitant]
     Active Substance: DILTIAZEM
  3. FLEXERIL [Concomitant]
     Active Substance: CYCLOBENZAPRINE HYDROCHLORIDE
  4. SPIRONOLACTONE. [Concomitant]
     Active Substance: SPIRONOLACTONE
  5. TYLENOL [Concomitant]
     Active Substance: ACETAMINOPHEN
  6. LASIX [Concomitant]
     Active Substance: FUROSEMIDE
  7. PLAVIX [Concomitant]
     Active Substance: CLOPIDOGREL BISULFATE
  8. TRAMADOL. [Concomitant]
     Active Substance: TRAMADOL
  9. ZOCOR [Concomitant]
     Active Substance: SIMVASTATIN
  10. MULTIVITAMIN [Concomitant]
     Active Substance: VITAMINS
  11. LETAIRIS [Suspect]
     Active Substance: AMBRISENTAN
     Indication: PULMONARY ARTERIAL HYPERTENSION
     Route: 048
     Dates: start: 20080716
  12. LEVOTHROID [Concomitant]
     Active Substance: LEVOTHYROXINE SODIUM
  13. RANITIDINE [Concomitant]
     Active Substance: RANITIDINE\RANITIDINE HYDROCHLORIDE
  14. POTASSIUM CHLORIDE. [Concomitant]
     Active Substance: POTASSIUM CHLORIDE
  15. METFORMIN [Concomitant]
     Active Substance: METFORMIN HYDROCHLORIDE
  16. LANOXIN [Concomitant]
     Active Substance: DIGOXIN
  17. OXYBUTYNIN [Concomitant]
     Active Substance: OXYBUTYNIN
  18. COLCHICINE. [Concomitant]
     Active Substance: COLCHICINE

REACTIONS (1)
  - Palpitations [Unknown]
